FAERS Safety Report 13378317 (Version 1)
Quarter: 2017Q1

REPORT INFORMATION
  Report Type: Report from Study
  Country: US (occurrence: US)
  Receive Date: 20170328
  Receipt Date: 20170328
  Transmission Date: 20170429
  Serious: Yes (Other)
  Sender: FDA-Public Use
  Company Number: US-BAYER-2017-052226

PATIENT
  Age: 64 Year
  Sex: Female

DRUGS (1)
  1. NEXAVAR [Suspect]
     Active Substance: SORAFENIB
     Indication: NEOPLASM MALIGNANT
     Dosage: 400 MG AM AND 200 MG PM
     Route: 048
     Dates: start: 20170301

REACTIONS (3)
  - Aphonia [None]
  - Allergic sinusitis [Not Recovered/Not Resolved]
  - Dysphonia [None]

NARRATIVE: CASE EVENT DATE: 201703
